FAERS Safety Report 4281833-1 (Version None)
Quarter: 2004Q1

REPORT INFORMATION
  Report Type: 
  Country: None (occurrence: None)
  Receive Date: 20040129
  Receipt Date: 20040123
  Transmission Date: 20041129
  Serious: Yes (Hospitalization, Other)
  Sender: FDA-Public Use
  Company Number: 04-00029

PATIENT
  Age: 58 Year
  Sex: Female

DRUGS (3)
  1. ALBUTEROL SULFATE [Suspect]
     Indication: ASTHMA
     Dosage: 0.083%, 1 VIAL EVERY 4 HOURS, INHALTION
     Route: 045
     Dates: start: 20030401, end: 20030401
  2. ALBUTEROL SULFATE [Suspect]
     Indication: WHEEZING
     Dosage: 0.083%, 1 VIAL EVERY 4 HOURS, INHALTION
     Route: 045
     Dates: start: 20030401, end: 20030401
  3. EPINEPHRINE [Concomitant]

REACTIONS (9)
  - ASTHMA [None]
  - BRONCHOSPASM [None]
  - CONDITION AGGRAVATED [None]
  - DIZZINESS [None]
  - DRUG INEFFECTIVE [None]
  - DYSPNOEA [None]
  - PHARMACEUTICAL PRODUCT COMPLAINT [None]
  - TREATMENT NONCOMPLIANCE [None]
  - WHEEZING [None]
